FAERS Safety Report 17827411 (Version 2)
Quarter: 2020Q2

REPORT INFORMATION
  Report Type: Report from Study
  Country: GB (occurrence: GB)
  Receive Date: 20200527
  Receipt Date: 20200530
  Transmission Date: 20200714
  Serious: Yes (Other)
  Sender: FDA-Public Use
  Company Number: GB-UCBSA-2020020372

PATIENT
  Age: 49 Year
  Sex: Male

DRUGS (1)
  1. BRIVARACETAM [Suspect]
     Active Substance: BRIVARACETAM
     Indication: EPILEPSY
     Dosage: 50 MILLIGRAM, 2X/DAY (BID)
     Route: 048
     Dates: start: 20180207, end: 20180320

REACTIONS (7)
  - Rash macular [Recovered/Resolved]
  - Adverse event [Unknown]
  - Seizure [Recovered/Resolved]
  - Drug intolerance [Unknown]
  - Pruritus [Recovered/Resolved]
  - Rhinorrhoea [Recovered/Resolved]
  - Lacrimation increased [Unknown]

NARRATIVE: CASE EVENT DATE: 20180313
